FAERS Safety Report 5374318-2 (Version None)
Quarter: 2007Q2

REPORT INFORMATION
  Report Type: 
  Country: None (occurrence: None)
  Receive Date: 20070629
  Receipt Date: 20070625
  Transmission Date: 20071010
  Serious: Yes (Death)
  Sender: FDA-Public Use
  Company Number: PHBS2007IT10791

PATIENT
  Age: 68 Year
  Sex: Male

DRUGS (5)
  1. ZOMETA [Suspect]
     Dosage: 4 MG, UNK
     Route: 042
     Dates: start: 20070612, end: 20070612
  2. GEMZAR [Suspect]
     Indication: LUNG NEOPLASM MALIGNANT
     Dosage: 1900 MG, UNK
     Route: 042
     Dates: start: 20070612, end: 20070612
  3. BICALUTAMIDE [Concomitant]
     Dosage: 150 MG, UNK
  4. MORPHINE SULFATE [Concomitant]
     Dosage: 20 MG, UNK
  5. DEXAMETHASONE 0.5MG TAB [Concomitant]
     Dosage: 8 MG, UNK

REACTIONS (5)
  - ALANINE AMINOTRANSFERASE INCREASED [None]
  - ASPARTATE AMINOTRANSFERASE INCREASED [None]
  - BLOOD BILIRUBIN INCREASED [None]
  - FEBRILE NEUTROPENIA [None]
  - HEPATITIS [None]
